FAERS Safety Report 6070384-X (Version None)
Quarter: 2009Q1

REPORT INFORMATION
  Report Type: 
  Country: None (occurrence: None)
  Receive Date: 20090204
  Receipt Date: 20090121
  Transmission Date: 20090719
  Serious: Yes (Hospitalization)
  Sender: FDA-Public Use
  Company Number: 2009160306

PATIENT
  Age: 76 Year
  Sex: Female

DRUGS (8)
  1. FRAGMIN [Suspect]
     Dosage: 18000 IU, SUBCUTANEOUS
     Route: 058
     Dates: start: 20080913, end: 20080916
  2. VALTREX [Suspect]
     Indication: HERPES ZOSTER
     Dosage: 1 G, 3X/DAY, ORAL; 1 G, 2X/DAY, ORAL
     Route: 048
     Dates: start: 20080914, end: 20080921
  3. SELOKEN ZOC (METOPROLOL SUCCINATE) [Concomitant]
  4. XALATAN (LATANOPROST) EYE DROPS, SOLUTION [Concomitant]
  5. LEVOTHYROXINE SODIUM [Concomitant]
  6. WARFARIN SODIUM [Concomitant]
  7. LASIX [Concomitant]
  8. ENALAPRIL MALEATE [Concomitant]

REACTIONS (2)
  - LEUKOPENIA [None]
  - THROMBOCYTOPENIA [None]
